FAERS Safety Report 7702144 (Version 3)
Quarter: 2012Q4

REPORT INFORMATION
  Report Type: Report from Study
  Country: IT (occurrence: IT)
  Receive Date: 20101209
  Receipt Date: 20121213
  Transmission Date: 20130627
  Serious: Yes (Disabling, Other)
  Sender: FDA-Public Use
  Company Number: IT-ELI_LILLY_AND_COMPANY-IT201012001222

PATIENT
  Age: 29 Year
  Sex: Female
  Weight: 45 kg

DRUGS (4)
  1. SOMATROPIN [Suspect]
     Indication: GROWTH HORMONE DEFICIENCY
     Dosage: 0.2 mg, daily (1/D)
     Route: 058
     Dates: start: 20000523
  2. EUTIROX [Concomitant]
     Indication: HYPOTHYROIDISM
     Dosage: 75 mg, oral
     Route: 048
     Dates: start: 19870101
  3. TOLEP [Concomitant]
     Indication: EPILEPSY
     Dosage: 300 mg, UNK
     Route: 048
     Dates: start: 20071101
  4. CACIT D3 [Concomitant]
     Indication: SUPPLEMENTATION THERAPY
     Dosage: UNK
     Dates: start: 20031201

REACTIONS (1)
  - Brain neoplasm [Not Recovered/Not Resolved]
